FAERS Safety Report 10254380 (Version 1)
Quarter: 2014Q2

REPORT INFORMATION
  Report Type: Spontaneous
  Country: NL (occurrence: NL)
  Receive Date: 20140624
  Receipt Date: 20140624
  Transmission Date: 20141212
  Serious: Yes (Other)
  Sender: FDA-Public Use
  Company Number: NL-AMGEN-NLDSP2014045400

PATIENT
  Age: 43 Year
  Sex: Female
  Weight: 113 kg

DRUGS (1)
  1. XGEVA [Suspect]
     Indication: OSTEOPOROSIS
     Dosage: 120 MG, QMO
     Route: 058
     Dates: start: 20130507

REACTIONS (1)
  - Osteomyelitis [Not Recovered/Not Resolved]
